FAERS Safety Report 9496799 (Version 1)
Quarter: 2013Q3

REPORT INFORMATION
  Report Type: Spontaneous
  Country: US (occurrence: US)
  Receive Date: 20130904
  Receipt Date: 20130904
  Transmission Date: 20140515
  Serious: Yes (Congenital Anomaly)
  Sender: FDA-Public Use
  Company Number: US-MYLANLABS-2013S1019086

PATIENT
  Sex: Male

DRUGS (2)
  1. CARBOPLATIN [Suspect]
     Indication: OVARIAN EPITHELIAL CANCER
     Dosage: AREA UNDER THE CURVE = 6 ON D1 OF 28-D CYCLE; 6 CYCLES PLANNED
     Route: 064
  2. PACLITAXEL [Suspect]
     Indication: OVARIAN EPITHELIAL CANCER
     Dosage: 60 MG/M2 ON D1, 8, 15 OF 28-D CYCLE; 6 CYCLES PLANNED
     Route: 064

REACTIONS (3)
  - Talipes [Recovering/Resolving]
  - Foetal exposure during pregnancy [Recovering/Resolving]
  - Low birth weight baby [Recovered/Resolved]
